FAERS Safety Report 15694321 (Version 1)
Quarter: 2018Q4

REPORT INFORMATION
  Report Type: Spontaneous
  Country: US (occurrence: US)
  Receive Date: 20181206
  Receipt Date: 20181206
  Transmission Date: 20190205
  Serious: No
  Sender: FDA-Public Use
  Company Number: US-TEVA-2018-US-982298

PATIENT
  Sex: Female

DRUGS (1)
  1. BUTALBITAL W/CAFFEINE W/CODEINE W/PARACETAMOL [Suspect]
     Active Substance: ACETAMINOPHEN\BUTALBITAL\CAFFEINE\CODEINE PHOSPHATE
     Dosage: 50 MG / 325 MG / 40 MG

REACTIONS (2)
  - Lip swelling [Unknown]
  - Drug ineffective [Unknown]
